FAERS Safety Report 12156994 (Version 1)
Quarter: 2016Q1

REPORT INFORMATION
  Report Type: Spontaneous
  Country: US (occurrence: US)
  Receive Date: 20160307
  Receipt Date: 20160307
  Transmission Date: 20160526
  Serious: No
  Sender: FDA-Public Use
  Company Number: US-BIOGEN-2016BI00195742

PATIENT
  Sex: Female

DRUGS (1)
  1. AVONEX [Suspect]
     Active Substance: INTERFERON BETA-1A
     Indication: MULTIPLE SCLEROSIS
     Dates: start: 20111018

REACTIONS (13)
  - Chromatopsia [Not Recovered/Not Resolved]
  - Irritability [Not Recovered/Not Resolved]
  - Hypotension [Not Recovered/Not Resolved]
  - Aphasia [Not Recovered/Not Resolved]
  - Injection site bruising [Not Recovered/Not Resolved]
  - Dizziness [Not Recovered/Not Resolved]
  - Hallucination [Not Recovered/Not Resolved]
  - Arrhythmia [Unknown]
  - Anxiety [Unknown]
  - Muscle spasticity [Unknown]
  - Amnesia [Not Recovered/Not Resolved]
  - Menorrhagia [Not Recovered/Not Resolved]
  - Crying [Not Recovered/Not Resolved]
